FAERS Safety Report 6938923-1 (Version None)
Quarter: 2010Q3

REPORT INFORMATION
  Report Type: 
  Country: None (occurrence: None)
  Receive Date: 20100824
  Receipt Date: 20100817
  Transmission Date: 20110219
  Serious: Yes (Life-Threatening, Hospitalization)
  Sender: FDA-Public Use
  Company Number: B0670262A

PATIENT
  Sex: Male

DRUGS (7)
  1. AUGMENTIN '125' [Suspect]
     Indication: ANTIBIOTIC PROPHYLAXIS
     Dosage: 1UNIT SINGLE DOSE
     Route: 042
     Dates: start: 20091229, end: 20091229
  2. NIMBEX [Suspect]
     Dosage: 1UNIT SINGLE DOSE
     Route: 042
     Dates: start: 20091229, end: 20091229
  3. SUCCINYLCHOLINE CHLORIDE [Suspect]
     Dosage: 1UNIT SINGLE DOSE
     Route: 042
     Dates: start: 20091229, end: 20091229
  4. SOTALEX [Concomitant]
     Indication: ATRIAL FIBRILLATION
     Dosage: 160MG TWICE PER DAY
     Route: 048
  5. DIPRIVAN [Concomitant]
     Dosage: 1UNIT SINGLE DOSE
     Route: 042
     Dates: start: 20091229, end: 20091229
  6. SUFENTA PRESERVATIVE FREE [Concomitant]
     Dosage: 1UNIT SINGLE DOSE
     Route: 042
     Dates: start: 20091229, end: 20091229
  7. GENTAMICIN [Concomitant]
     Indication: ANTIBIOTIC PROPHYLAXIS
     Dosage: 1UNIT SINGLE DOSE
     Route: 042
     Dates: start: 20091229, end: 20091229

REACTIONS (8)
  - ANAPHYLACTIC SHOCK [None]
  - ATRIAL FIBRILLATION [None]
  - BRONCHOSPASM [None]
  - SHOCK [None]
  - SKIN TEST POSITIVE [None]
  - TROPONIN INCREASED [None]
  - TYPE I HYPERSENSITIVITY [None]
  - URTICARIA [None]
